FAERS Safety Report 7412126-9 (Version None)
Quarter: 2011Q2

REPORT INFORMATION
  Report Type: 
  Country: None (occurrence: None)
  Receive Date: 20110413
  Receipt Date: 20110405
  Transmission Date: 20111010
  Serious: Yes (Other)
  Sender: FDA-Public Use
  Company Number: CH-SANOFI-AVENTIS-2011SA020970

PATIENT
  Sex: Male

DRUGS (1)
  1. ELOXATIN [Suspect]
     Route: 042

REACTIONS (2)
  - INJECTION SITE PAIN [None]
  - PARALYSIS [None]
